FAERS Safety Report 9620184 (Version 1)
Quarter: 2013Q4

REPORT INFORMATION
  Report Type: Spontaneous
  Country: AU (occurrence: AU)
  Receive Date: 20131014
  Receipt Date: 20131014
  Transmission Date: 20140711
  Serious: Yes (Other)
  Sender: FDA-Public Use
  Company Number: PHHY2013AU112836

PATIENT
  Age: 42 Year
  Sex: Female

DRUGS (1)
  1. ATORVASTATIN [Suspect]
     Dosage: 40 MG, UNK

REACTIONS (4)
  - Pneumonia [Unknown]
  - Rhabdomyolysis [Recovered/Resolved]
  - Blood creatine phosphokinase increased [Recovered/Resolved]
  - Muscular weakness [Recovered/Resolved]
